FAERS Safety Report 7730280-6 (Version None)
Quarter: 2011Q3

REPORT INFORMATION
  Report Type: 
  Country: None (occurrence: None)
  Receive Date: 20110906
  Receipt Date: 20110829
  Transmission Date: 20111222
  Serious: Yes (Death)
  Sender: FDA-Public Use
  Company Number: TW-TEVA-299099ISR

PATIENT
  Age: 11 Year
  Sex: Male

DRUGS (4)
  1. MECHLORETHAMINE [Suspect]
  2. PROCARBAZINE HYDROCHLORIDE [Suspect]
  3. ONCOVIN [Suspect]
  4. PREDNISONE [Suspect]

REACTIONS (1)
  - BACTERIAL SEPSIS [None]
